FAERS Safety Report 9120980 (Version 15)
Quarter: 2014Q1

REPORT INFORMATION
  Report Type: Spontaneous
  Country: CA (occurrence: CA)
  Receive Date: 20130226
  Receipt Date: 20140331
  Transmission Date: 20141002
  Serious: Yes (Hospitalization, Disabling)
  Sender: FDA-Public Use
  Company Number: CA-GLAXOSMITHKLINE-A1011750A

PATIENT
  Age: 18 Year
  Sex: Female
  Weight: 95.8 kg

DRUGS (8)
  1. BENADRYL [Concomitant]
  2. TYLENOL [Concomitant]
  3. ANTIBIOTICS [Concomitant]
  4. BENLYSTA [Suspect]
     Indication: SYSTEMIC LUPUS ERYTHEMATOSUS
     Dosage: 923MG SEE DOSAGE TEXT
     Route: 042
     Dates: start: 20130206
  5. CORTISONE [Suspect]
     Indication: PRODUCT USED FOR UNKNOWN INDICATION
     Route: 042
     Dates: start: 20130610
  6. COUMADIN [Concomitant]
  7. CELLCEPT [Concomitant]
  8. PREDNISONE [Concomitant]

REACTIONS (22)
  - Headache [Recovering/Resolving]
  - Musculoskeletal pain [Recovered/Resolved]
  - Back pain [Recovered/Resolved]
  - Systemic lupus erythematosus [Unknown]
  - Emotional disorder [Unknown]
  - Discomfort [Unknown]
  - Visual acuity reduced [Unknown]
  - Visual impairment [Unknown]
  - Drug ineffective [Unknown]
  - Influenza [Recovered/Resolved]
  - Diarrhoea [Recovered/Resolved]
  - Vomiting [Recovered/Resolved]
  - Fatigue [Unknown]
  - Depressed mood [Unknown]
  - Ill-defined disorder [Unknown]
  - Tooth fracture [Recovered/Resolved]
  - Infection [Recovered/Resolved]
  - Biopsy kidney [Recovered/Resolved]
  - Nasopharyngitis [Unknown]
  - Pyrexia [Unknown]
  - Somnolence [Not Recovered/Not Resolved]
  - Middle insomnia [Unknown]
